FAERS Safety Report 22634185 (Version 4)
Quarter: 2023Q4

REPORT INFORMATION
  Report Type: Spontaneous
  Country: CA (occurrence: CA)
  Receive Date: 20230623
  Receipt Date: 20231106
  Transmission Date: 20240110
  Serious: Yes (Hospitalization, Other)
  Sender: FDA-Public Use
  Company Number: CA-AMERICAN REGENT INC-2023001483

PATIENT
  Age: 77 Year
  Sex: Female

DRUGS (6)
  1. VENOFER [Suspect]
     Active Substance: IRON SUCROSE
     Indication: Product used for unknown indication
     Dosage: 300 MILLIGRAM IN 250 ML OF NS 0.9%, ONCE A WEEK
     Route: 042
     Dates: start: 20230607, end: 20230607
  2. SYNTHROID [Concomitant]
     Active Substance: LEVOTHYROXINE SODIUM
     Indication: Thyroid disorder
     Dosage: 50 MICROGRAM DAILY
     Route: 048
     Dates: start: 202206
  3. LIQUICAL D [Concomitant]
     Indication: Product used for unknown indication
     Dosage: 500 MG/400 IU, QD
     Route: 048
     Dates: start: 202207
  4. PREDNISOLONE [Concomitant]
     Active Substance: PREDNISOLONE
     Indication: Product used for unknown indication
     Dosage: 1 DROP EVERY SECOND DAY
     Route: 047
     Dates: start: 202206
  5. GABAPENTIN [Concomitant]
     Active Substance: GABAPENTIN
     Indication: Product used for unknown indication
     Dosage: 100 MILLIGRAM, BID
     Route: 048
     Dates: start: 202210, end: 202303
  6. GABAPENTIN [Concomitant]
     Active Substance: GABAPENTIN
     Dosage: 100 MILLIGRAM QD
     Route: 048
     Dates: start: 202303, end: 202305

REACTIONS (3)
  - Muscular weakness [Recovered/Resolved]
  - Peripheral swelling [Recovered/Resolved]
  - Product complaint [Unknown]

NARRATIVE: CASE EVENT DATE: 20230607
